FAERS Safety Report 9266719 (Version 1)
Quarter: 2013Q2

REPORT INFORMATION
  Report Type: Spontaneous
  Country: US (occurrence: US)
  Receive Date: 20130502
  Receipt Date: 20130502
  Transmission Date: 20140414
  Serious: Yes (Other)
  Sender: FDA-Public Use
  Company Number: US-PFIZER INC-2013135899

PATIENT
  Age: 65 Year
  Sex: Female
  Weight: 95.69 kg

DRUGS (3)
  1. LYRICA [Suspect]
     Indication: DIABETIC NEUROPATHY
     Dosage: UNK
  2. LISINOPRIL [Concomitant]
     Indication: HYPERTENSION
     Dosage: 25 MG/DAY
  3. METFORMIN [Concomitant]
     Indication: TYPE 2 DIABETES MELLITUS
     Dosage: 500 MG, 2X/DAY

REACTIONS (5)
  - Cardiac disorder [Unknown]
  - Ulcer haemorrhage [Unknown]
  - Weight decreased [Unknown]
  - Fibromyalgia [Unknown]
  - Pain [Unknown]
